FAERS Safety Report 19833252 (Version 1)
Quarter: 2021Q3

REPORT INFORMATION
  Report Type: Spontaneous
  Country: US (occurrence: US)
  Receive Date: 20210915
  Receipt Date: 20210915
  Transmission Date: 20211014
  Serious: No
  Sender: FDA-Public Use
  Company Number: US-GLAXOSMITHKLINE-US2021AMR190830

PATIENT
  Sex: Male

DRUGS (1)
  1. ALBUTEROL SULFATE. [Suspect]
     Active Substance: ALBUTEROL SULFATE
     Indication: PRODUCT USED FOR UNKNOWN INDICATION
     Dosage: 2 PUFF(S), Z (EVERY FOUR HOURS AS NEEDED), 90 MCG, 18G/200 METERED

REACTIONS (2)
  - Intentional product misuse [Unknown]
  - Wrong technique in device usage process [Unknown]
